FAERS Safety Report 24392852 (Version 1)
Quarter: 2024Q4

REPORT INFORMATION
  Report Type: Spontaneous
  Country: US (occurrence: None)
  Receive Date: 20241003
  Receipt Date: 20241003
  Transmission Date: 20250115
  Serious: Yes (Hospitalization)
  Sender: Public
  Company Number: None

PATIENT
  Sex: Male
  Weight: 59.8 kg

DRUGS (15)
  1. CISPLATIN [Suspect]
     Active Substance: CISPLATIN
  2. PEMETREXED (ALIMTA; LY2315414) [Concomitant]
  3. FOLIC ACID [Concomitant]
     Active Substance: FOLIC ACID
  4. FOOD SUPPLEMENT, LACTOSE=FREE (ENSURE ACTIVE HIGH PROTEIN LIQUID) [Concomitant]
  5. LEVOFLOXACIN [Concomitant]
     Active Substance: LEVOFLOXACIN
  6. Metoprolol tartrate, Short Acting (LOPRESSOR) [Concomitant]
  7. NaCl 0.9% 1000 mL iv Bolus [Concomitant]
  8. Norepinephrine (LEVOPHED) [Concomitant]
  9. ZYPREXA [Concomitant]
     Active Substance: OLANZAPINE
  10. ZOFRAN [Concomitant]
     Active Substance: ONDANSETRON HYDROCHLORIDE
  11. Piperacillin-tazobactarn IV piggyback in dextrose (ZOSYN) [Concomitant]
  12. Prochlorperazine (COMPAZINE) [Concomitant]
  13. Tiotropium Bromide (SPIRIVA RESPIMAT) [Concomitant]
  14. Vancornycin JV Piggyback in D5W (VANCOCJN) [Concomitant]
  15. ZINC SULFATE [Concomitant]

REACTIONS (2)
  - Dyspnoea [None]
  - Sepsis [None]

NARRATIVE: CASE EVENT DATE: 20240925
